FAERS Safety Report 14022278 (Version 1)
Quarter: 2017Q3

REPORT INFORMATION
  Report Type: Spontaneous
  Country: US (occurrence: None)
  Receive Date: 20170929
  Receipt Date: 20170929
  Transmission Date: 20171128
  Serious: Yes (Hospitalization)
  Sender: FDA-Public Use
  Company Number: None

PATIENT
  Age: 10 Year
  Sex: Female
  Weight: 75.8 kg

DRUGS (3)
  1. ONCASPAR [Suspect]
     Active Substance: PEGASPARGASE
     Dates: end: 20170829
  2. METHOTREXATE. [Suspect]
     Active Substance: METHOTREXATE
     Dates: end: 20170913
  3. VINCRISTINE SULFATE. [Suspect]
     Active Substance: VINCRISTINE SULFATE
     Dates: end: 20170913

REACTIONS (9)
  - Coagulopathy [None]
  - Pyrexia [None]
  - Blood bilirubin increased [None]
  - Hepatic function abnormal [None]
  - Blood fibrinogen decreased [None]
  - Hepatic enzyme increased [None]
  - Activated partial thromboplastin time prolonged [None]
  - Hepatomegaly [None]
  - Escherichia test positive [None]

NARRATIVE: CASE EVENT DATE: 20170921
